FAERS Safety Report 5493996-0 (Version None)
Quarter: 2007Q4

REPORT INFORMATION
  Report Type: 
  Country: None (occurrence: None)
  Receive Date: 20071023
  Receipt Date: 20071011
  Transmission Date: 20080405
  Serious: Yes (Other)
  Sender: FDA-Public Use
  Company Number: AR-PFIZER INC-2007076194

PATIENT
  Sex: Female
  Weight: 68 kg

DRUGS (4)
  1. CHAMPIX [Suspect]
     Indication: SMOKING CESSATION THERAPY
     Route: 048
     Dates: start: 20070801, end: 20070927
  2. CLONAZEPAM [Concomitant]
     Route: 048
  3. VALCOTE [Concomitant]
     Route: 048
  4. RISPERIDONE [Concomitant]
     Route: 048

REACTIONS (1)
  - PARANOIA [None]
